FAERS Safety Report 7148172-2 (Version None)
Quarter: 2010Q4

REPORT INFORMATION
  Report Type: 
  Country: None (occurrence: None)
  Receive Date: 20101209
  Receipt Date: 20101201
  Transmission Date: 20110411
  Serious: Yes (Death)
  Sender: FDA-Public Use
  Company Number: US-CELGENEUS-163-21880-10120657

PATIENT
  Age: 67 Year
  Sex: Male

DRUGS (10)
  1. REVLIMID [Suspect]
     Indication: MULTIPLE MYELOMA
     Route: 048
     Dates: start: 20090310, end: 20100410
  2. FENTANYL [Concomitant]
     Route: 062
  3. ASPIRIN [Concomitant]
     Route: 065
  4. MORPHINE [Concomitant]
     Route: 065
  5. INDOMETHACIN [Concomitant]
     Route: 065
  6. ACYCLOVIR SODIUM [Concomitant]
     Route: 065
  7. METOPROLOL [Concomitant]
     Route: 065
  8. PAMELOR [Concomitant]
     Route: 065
  9. OXYCODONE HCL [Concomitant]
     Route: 065
  10. PHENOBARBITAL [Concomitant]
     Route: 065

REACTIONS (2)
  - DEATH [None]
  - DISEASE PROGRESSION [None]
